FAERS Safety Report 5049147-X (Version None)
Quarter: 2006Q3

REPORT INFORMATION
  Report Type: 
  Country: None (occurrence: None)
  Receive Date: 20060712
  Receipt Date: 20060330
  Transmission Date: 20061208
  Serious: No
  Sender: FDA-Public Use
  Company Number: US-GLAXOSMITHKLINE-A0599739A

PATIENT
  Age: 53 Year
  Sex: Female

DRUGS (2)
  1. IMITREX [Suspect]
     Indication: MIGRAINE
     Dosage: 100MG AS REQUIRED
     Route: 048
     Dates: start: 20060330
  2. MOTRIN [Concomitant]

REACTIONS (5)
  - CHEST DISCOMFORT [None]
  - DRUG ADMINISTRATION ERROR [None]
  - PARAESTHESIA [None]
  - SENSATION OF HEAVINESS [None]
  - SOMNOLENCE [None]
